FAERS Safety Report 10605642 (Version 1)
Quarter: 2014Q4

REPORT INFORMATION
  Report Type: Spontaneous
  Country: VN (occurrence: VN)
  Receive Date: 20141125
  Receipt Date: 20141125
  Transmission Date: 20150529
  Serious: Yes (Other)
  Sender: FDA-Public Use
  Company Number: VN-ROCHE-1494116

PATIENT
  Age: 62 Year
  Sex: Female

DRUGS (7)
  1. FLUOROURACIL. [Concomitant]
     Active Substance: FLUOROURACIL
     Dosage: 4 CYCLES
     Route: 065
  2. OXALIPLATIN. [Concomitant]
     Active Substance: OXALIPLATIN
     Dosage: 4 CYCLES
     Route: 065
  3. CAPECITABINE. [Suspect]
     Active Substance: CAPECITABINE
     Dosage: MAINTAINANCE CYCLE UNTIL 6 CYCLES
     Route: 065
     Dates: end: 201406
  4. AVASTIN [Concomitant]
     Active Substance: BEVACIZUMAB
     Dosage: 4 CYCLES
     Route: 065
  5. AVASTIN [Concomitant]
     Active Substance: BEVACIZUMAB
     Dosage: MAITAINANCE CYCLE UNTIL 6 CYCLES
     Route: 065
     Dates: end: 201406
  6. FOLINIC ACID [Concomitant]
     Active Substance: LEUCOVORIN
     Dosage: 4 CYCLES
     Route: 065
  7. CAPECITABINE. [Suspect]
     Active Substance: CAPECITABINE
     Indication: ADENOCARCINOMA
     Dosage: 6 CYCLES
     Route: 065
     Dates: end: 201203

REACTIONS (4)
  - Metastases to lung [Unknown]
  - Drug ineffective [Unknown]
  - Adenocarcinoma of colon [Recovered/Resolved]
  - Weight decreased [Unknown]
